FAERS Safety Report 10059628 (Version 2)
Quarter: 2014Q2

REPORT INFORMATION
  Report Type: Spontaneous
  Country: JP (occurrence: JP)
  Receive Date: 20140404
  Receipt Date: 20140414
  Transmission Date: 20141212
  Serious: Yes (Death)
  Sender: FDA-Public Use
  Company Number: JP-JNJFOC-20140318722

PATIENT
  Age: 71 Year
  Sex: Male
  Weight: 55.4 kg

DRUGS (18)
  1. XEPLION [Suspect]
     Indication: SCHIZOPHRENIA
     Route: 030
     Dates: start: 20140124, end: 20140124
  2. XEPLION [Suspect]
     Indication: SCHIZOPHRENIA
     Route: 030
     Dates: start: 20140301, end: 20140301
  3. XEPLION [Suspect]
     Indication: SCHIZOPHRENIA
     Route: 030
     Dates: start: 20140131, end: 20140131
  4. RISPERDAL [Concomitant]
     Indication: SCHIZOPHRENIA
     Route: 048
     Dates: start: 20140123
  5. CERCINE [Concomitant]
     Indication: SCHIZOPHRENIA
     Route: 048
     Dates: start: 20140207, end: 20140301
  6. DEPAKENE [Concomitant]
     Indication: SCHIZOPHRENIA
     Dosage: 5% AT 15 ML PER DAY
     Route: 048
     Dates: start: 20140207, end: 20140301
  7. SERENACE [Concomitant]
     Indication: SCHIZOPHRENIA
     Route: 042
     Dates: start: 20140122, end: 20140301
  8. SERENACE [Concomitant]
     Indication: SCHIZOPHRENIA
     Route: 042
     Dates: start: 20140106, end: 20140107
  9. SERENACE [Concomitant]
     Indication: SCHIZOPHRENIA
     Route: 042
     Dates: start: 20140115, end: 20140121
  10. SERENACE [Concomitant]
     Indication: SCHIZOPHRENIA
     Route: 048
     Dates: start: 20140123, end: 20140127
  11. SERENACE [Concomitant]
     Indication: SCHIZOPHRENIA
     Route: 048
     Dates: start: 20140128, end: 20140130
  12. SERENACE [Concomitant]
     Indication: SCHIZOPHRENIA
     Route: 048
     Dates: start: 20140131, end: 20140301
  13. ZYPREXA [Concomitant]
     Indication: SCHIZOPHRENIA
     Route: 048
     Dates: start: 20140204, end: 20140301
  14. ATARAX-P [Concomitant]
     Indication: SCHIZOPHRENIA
     Route: 042
     Dates: start: 20140210, end: 20140301
  15. EPADEL [Concomitant]
     Indication: PERIPHERAL COLDNESS
     Route: 048
     Dates: start: 20140130, end: 20140301
  16. ENSURE [Concomitant]
     Indication: NUTRITIONAL SUPPLEMENTATION
     Route: 048
     Dates: start: 20140115, end: 20140301
  17. FLUMARIN [Concomitant]
     Indication: PNEUMONIA
     Route: 065
     Dates: start: 20140115, end: 20140301
  18. VOLTAREN [Concomitant]
     Route: 054
     Dates: start: 20140301, end: 20140301

REACTIONS (4)
  - Pneumonia [Fatal]
  - Decubitus ulcer [Unknown]
  - Fatigue [Unknown]
  - Somnolence [Unknown]
